FAERS Safety Report 9367044 (Version 2)
Quarter: 2013Q3

REPORT INFORMATION
  Report Type: Spontaneous
  Country: DE (occurrence: DE)
  Receive Date: 20130625
  Receipt Date: 20130801
  Transmission Date: 20140515
  Serious: Yes (Life-Threatening, Hospitalization, Other)
  Sender: FDA-Public Use
  Company Number: GXKR2013DE002204

PATIENT
  Age: 46 Year
  Sex: Female
  Weight: 80 kg

DRUGS (4)
  1. CARBAMAZEPIN 1A PHARMA [Suspect]
     Indication: COMPLEX REGIONAL PAIN SYNDROME
     Dosage: 200 MG, BID
     Route: 048
     Dates: start: 2011
  2. NOVALGIN                                /SCH/ [Concomitant]
     Dosage: 1000 MG, BID
     Route: 048
  3. JURNISTA [Concomitant]
     Dosage: 16 MG, QD
     Route: 048
  4. L THYROX [Concomitant]
     Dosage: 150 UG, QD
     Route: 048

REACTIONS (10)
  - Loss of consciousness [Unknown]
  - Fall [Unknown]
  - Haematemesis [Unknown]
  - Nausea [Unknown]
  - Pain in extremity [Unknown]
  - Hearing impaired [Unknown]
  - Hypoaesthesia oral [Unknown]
  - Facial paresis [Unknown]
  - Swelling face [Unknown]
  - Erythema [Unknown]
